FAERS Safety Report 15215748 (Version 1)
Quarter: 2018Q3

REPORT INFORMATION
  Report Type: Spontaneous
  Country: US (occurrence: US)
  Receive Date: 20180703
  Receipt Date: 20180703
  Transmission Date: 20181010
  Serious: Yes (Hospitalization)
  Sender: FDA-Public Use
  Company Number: None

PATIENT
  Age: 1 Year
  Sex: Female

DRUGS (7)
  1. VIGABATRIN PWD [Suspect]
     Active Substance: VIGABATRIN
  2. LEVETIRACETA [Concomitant]
  3. VITAMIN D [Concomitant]
     Active Substance: CHOLECALCIFEROL
  4. NYSTATIN. [Concomitant]
     Active Substance: NYSTATIN
  5. VIGABATRIN PWD [Suspect]
     Active Substance: VIGABATRIN
     Indication: EPILEPSY
     Route: 048
     Dates: start: 20180315
  6. SIMEHICONE [Concomitant]
  7. ONFI [Concomitant]
     Active Substance: CLOBAZAM

REACTIONS (3)
  - Drug dose omission [None]
  - Seizure [None]
  - Pyrexia [None]

NARRATIVE: CASE EVENT DATE: 201806
